FAERS Safety Report 4473255-5 (Version None)
Quarter: 2004Q4

REPORT INFORMATION
  Report Type: 
  Country: None (occurrence: None)
  Receive Date: 20041013
  Receipt Date: 20041008
  Transmission Date: 20050328
  Serious: Yes (Death)
  Sender: FDA-Public Use
  Company Number: PHBS2004CL13418

PATIENT
  Age: 49 Year
  Sex: Male

DRUGS (1)
  1. TAREG D [Suspect]
     Indication: HYPERTENSION
     Dosage: VALS 160 / HCT 12.5 MG
     Route: 048
     Dates: start: 20030601

REACTIONS (1)
  - CEREBROVASCULAR ACCIDENT [None]
